FAERS Safety Report 21957981 (Version 1)
Quarter: 2023Q1

REPORT INFORMATION
  Report Type: Spontaneous
  Country: US (occurrence: None)
  Receive Date: 20230203
  Receipt Date: 20230203
  Transmission Date: 20230418
  Serious: No
  Sender: FDA-Public Use
  Company Number: None

PATIENT
  Age: 33 Year
  Sex: Female

DRUGS (1)
  1. ANGIOMAX [Suspect]
     Active Substance: BIVALIRUDIN

REACTIONS (4)
  - Device delivery system issue [None]
  - Incorrect dose administered by device [None]
  - Incorrect drug administration rate [None]
  - Device infusion issue [None]

NARRATIVE: CASE EVENT DATE: 20220725
